FAERS Safety Report 19458822 (Version 5)
Quarter: 2021Q4

REPORT INFORMATION
  Report Type: Spontaneous
  Country: PL (occurrence: PL)
  Receive Date: 20210624
  Receipt Date: 20211228
  Transmission Date: 20220304
  Serious: Yes (Life-Threatening, Hospitalization, Other)
  Sender: FDA-Public Use
  Company Number: PL-CELGENE-POL-20210600466

PATIENT
  Age: 75 Year
  Sex: Male
  Weight: 78.1 kg

DRUGS (37)
  1. CARBOPLATIN [Suspect]
     Active Substance: CARBOPLATIN
     Indication: Non-small cell lung cancer metastatic
     Dosage: 464 MG, EVERY 3 WEEKS
     Route: 041
     Dates: start: 20210212, end: 20210212
  2. ABRAXANE [Suspect]
     Active Substance: PACLITAXEL
     Indication: Non-small cell lung cancer metastatic
     Dosage: 197 MG, WEEKLY
     Route: 041
     Dates: start: 20210212
  3. MEGESTROL [Concomitant]
     Active Substance: MEGESTROL
     Indication: Increased appetite
     Dosage: 20 ML, 1X/DAY
     Route: 048
     Dates: start: 20210304, end: 20210305
  4. OXYCODONE [Concomitant]
     Active Substance: OXYCODONE
     Indication: Analgesic therapy
     Dosage: 2 DF, 1X/DAY
     Route: 048
     Dates: start: 202101, end: 20210213
  5. OXYCODONE [Concomitant]
     Active Substance: OXYCODONE
     Indication: Prophylaxis
     Dosage: 10 MG, 1X/DAY
     Route: 048
     Dates: start: 20210219
  6. OXYCODONE [Concomitant]
     Active Substance: OXYCODONE
     Dosage: 20 MG, 1X/DAY
     Route: 048
     Dates: start: 20210219
  7. DEXAMETHASONE [Concomitant]
     Active Substance: DEXAMETHASONE
     Indication: Prophylaxis
     Dosage: 4 MG, 1X/DAY
     Route: 041
     Dates: start: 20210327, end: 20210327
  8. INDAPAMIDE [Concomitant]
     Active Substance: INDAPAMIDE
     Indication: Hypertension
     Dosage: 15 MG, 1X/DAY
     Route: 048
     Dates: start: 20201019
  9. VANCOMYCINUM [VANCOMYCIN] [Concomitant]
     Indication: Prophylaxis
     Dosage: 250 MG, 1X/DAY
     Route: 041
     Dates: start: 20210327, end: 20210329
  10. LOPERAMIDE [Concomitant]
     Active Substance: LOPERAMIDE
     Indication: Diarrhoea
     Dosage: UNK
     Dates: start: 2021
  11. WHOLE BLOOD [Concomitant]
     Active Substance: WHOLE BLOOD
     Indication: Anaemia
     Dosage: 600 ML, 1X/DAY
     Route: 041
     Dates: start: 20210327, end: 20210327
  12. HUMAN RED BLOOD CELL [Concomitant]
     Active Substance: HUMAN RED BLOOD CELL
     Indication: Anaemia
     Dosage: 600 ML, 1X/DAY
     Route: 041
     Dates: start: 20210327, end: 20210327
  13. PREDNISONE [Concomitant]
     Active Substance: PREDNISONE
     Indication: Prophylaxis
     Dosage: 10 MG, WEEKLY
     Route: 048
     Dates: start: 20210212
  14. PREDNISONE [Concomitant]
     Active Substance: PREDNISONE
     Dosage: 5 MG, WEEKLY
     Route: 048
     Dates: start: 20210212
  15. POTASSIUM CHLORIDE [Concomitant]
     Active Substance: POTASSIUM CHLORIDE
     Indication: Supplementation therapy
     Dosage: 782 MG, 1X/DAY
     Route: 048
     Dates: start: 20210304, end: 20210305
  16. PREGABALIN [Concomitant]
     Active Substance: PREGABALIN
     Indication: Analgesic therapy
     Dosage: 150 MG, 1X/DAY
     Route: 048
     Dates: start: 20210321, end: 20210323
  17. FAMOTIDINUM [Concomitant]
     Indication: Prophylaxis
     Dosage: 40 MG, WEEKLY
     Route: 048
     Dates: start: 20210308
  18. CHLORPROMAZINE [Concomitant]
     Active Substance: CHLORPROMAZINE
     Indication: Prophylaxis
     Dosage: 20 DROP
     Route: 048
     Dates: start: 20210321, end: 20210323
  19. FLUCONAZOLUM [FLUCONAZOLE] [Concomitant]
     Indication: Candida infection
     Dosage: 100 MG, 1X/DAY
     Route: 048
     Dates: start: 20210304, end: 20210309
  20. ZOLEDRONIC ACID [Concomitant]
     Active Substance: ZOLEDRONIC ACID
     Indication: Prophylaxis
     Dosage: 4 MG, CYCLIC (EVERY 4 WEEK)
     Route: 041
     Dates: start: 20210226
  21. PERINDOPRIL [Concomitant]
     Active Substance: PERINDOPRIL
     Indication: Hypertension
     Dosage: 2.5 MG, 1X/DAY
     Route: 048
     Dates: start: 20210308, end: 20210309
  22. SMECTA [Concomitant]
     Active Substance: MONTMORILLONITE
     Indication: Diarrhoea
     Dosage: UNK
     Dates: start: 2021
  23. MAGNESIUM SULFATE [Concomitant]
     Active Substance: MAGNESIUM SULFATE
     Indication: Prophylaxis
     Dosage: UNK, 1X/DAY
     Route: 041
     Dates: start: 20210212
  24. GLYCOPYRROLATE [Concomitant]
     Active Substance: GLYCOPYRROLATE
     Dosage: UNK
  25. FUROSEMIDE [Concomitant]
     Active Substance: FUROSEMIDE
     Indication: Prophylaxis
     Dosage: UNK, 1X/DAY
     Route: 041
     Dates: start: 20210212
  26. ONDANSETRON [Concomitant]
     Active Substance: ONDANSETRON
     Indication: Prophylaxis
     Dosage: 8 MG, 1X/DAY
     Route: 048
     Dates: start: 20210212
  27. TAMSULOSIN [Concomitant]
     Active Substance: TAMSULOSIN
     Indication: Benign prostatic hyperplasia
     Dosage: 40 MG
     Route: 048
     Dates: start: 2018
  28. BUDESONIDE [Concomitant]
     Active Substance: BUDESONIDE
     Indication: Chronic obstructive pulmonary disease
     Dosage: UNK, 1X/DAY
     Route: 055
     Dates: start: 202010
  29. CHOLECALCIFEROL [Concomitant]
     Active Substance: CHOLECALCIFEROL
     Indication: Supplementation therapy
     Dosage: 2000 IU, 1X/DAY
     Route: 041
     Dates: start: 20210226
  30. METFORMIN [Concomitant]
     Active Substance: METFORMIN HYDROCHLORIDE
     Indication: Diabetes mellitus
     Dosage: 40 MG
     Route: 048
     Dates: start: 2018
  31. INDACATEROL MALEATE [Concomitant]
     Active Substance: INDACATEROL MALEATE
     Indication: Chronic obstructive pulmonary disease
     Dosage: UNK
     Route: 055
     Dates: start: 202010
  32. NEBIVOLOL [Concomitant]
     Active Substance: NEBIVOLOL
     Indication: Hypertension
     Dosage: 5 MG
     Route: 048
     Dates: start: 2018
  33. CALCIUM CARBONATE [Concomitant]
     Active Substance: CALCIUM CARBONATE
     Indication: Supplementation therapy
     Dosage: 200 MG, 1X/DAY
     Route: 041
     Dates: start: 20210226
  34. CLEMASTINE [Concomitant]
     Active Substance: CLEMASTINE
     Indication: Prophylaxis
     Dosage: 2 MG, 1X/DAY
     Route: 041
     Dates: start: 20210212
  35. OMEPRAZOLE [Concomitant]
     Active Substance: OMEPRAZOLE
     Indication: Abdominal pain upper
     Dosage: 20 MG, 1X/DAY
     Route: 048
     Dates: start: 20210207
  36. ATORVASTATIN [Concomitant]
     Active Substance: ATORVASTATIN
     Indication: Hypercholesterolaemia
     Dosage: 2 MG
     Route: 048
     Dates: start: 2019
  37. DEXTROSE MONOHYDRATE [Concomitant]
     Active Substance: DEXTROSE MONOHYDRATE
     Indication: Diarrhoea
     Dosage: UNK
     Dates: start: 2021

REACTIONS (2)
  - Neutropenia [Recovered/Resolved]
  - Neutropenia [Recovered/Resolved]

NARRATIVE: CASE EVENT DATE: 20210304
